FAERS Safety Report 8532415-4 (Version None)
Quarter: 2012Q3

REPORT INFORMATION
  Report Type: 
  Country: None (occurrence: None)
  Receive Date: 20120724
  Receipt Date: 20120716
  Transmission Date: 20120928
  Serious: No
  Sender: FDA-Public Use
  Company Number: US-BIOGENIDEC-2012BI026564

PATIENT
  Age: 49 Year
  Sex: Female

DRUGS (4)
  1. AMPYRA [Concomitant]
     Indication: MULTIPLE SCLEROSIS
  2. GILENYA [Concomitant]
     Indication: MULTIPLE SCLEROSIS
  3. TYSABRI [Suspect]
     Route: 042
     Dates: start: 20110908
  4. TYSABRI [Suspect]
     Indication: MULTIPLE SCLEROSIS
     Route: 042
     Dates: start: 20070124, end: 20080529

REACTIONS (3)
  - LOSS OF CONTROL OF LEGS [None]
  - FUNGAL INFECTION [None]
  - PAIN IN EXTREMITY [None]
